FAERS Safety Report 24912635 (Version 1)
Quarter: 2025Q1

REPORT INFORMATION
  Report Type: Spontaneous
  Country: CN (occurrence: CN)
  Receive Date: 20250131
  Receipt Date: 20250131
  Transmission Date: 20250408
  Serious: Yes (Hospitalization)
  Sender: MERCK
  Company Number: CN-009507513-2501CHN010820

PATIENT
  Age: 73 Year
  Sex: Female

DRUGS (1)
  1. STEGLATRO [Suspect]
     Active Substance: ERTUGLIFLOZIN PIDOLATE
     Indication: Diabetic nephropathy
     Dosage: 5 MILLIGRAM, QD
     Route: 048
     Dates: start: 20241228, end: 20241230

REACTIONS (1)
  - Genital infection female [Recovering/Resolving]

NARRATIVE: CASE EVENT DATE: 20241230
